FAERS Safety Report 7775339-2 (Version None)
Quarter: 2011Q3

REPORT INFORMATION
  Report Type: 
  Country: None (occurrence: None)
  Receive Date: 20110923
  Receipt Date: 20110915
  Transmission Date: 20111222
  Serious: Yes (Other)
  Sender: FDA-Public Use
  Company Number: US-US-EMD SERONO, INC.-7083770

PATIENT
  Sex: Female

DRUGS (2)
  1. REBIF [Suspect]
     Indication: MULTIPLE SCLEROSIS
     Route: 058
     Dates: start: 20091001
  2. ANTIVERT [Concomitant]
     Indication: VERTIGO

REACTIONS (3)
  - RETINAL DEGENERATION [None]
  - DIZZINESS [None]
  - VOMITING [None]
